FAERS Safety Report 7673037 (Version 2)
Quarter: 2013Q3

REPORT INFORMATION
  Report Type: Spontaneous
  Country: US (occurrence: US)
  Receive Date: 20101117
  Receipt Date: 20130827
  Transmission Date: 20140515
  Serious: Yes (Hospitalization, Other)
  Sender: FDA-Public Use
  Company Number: US-US-EMD SERONO, INC.-7026941

PATIENT
  Sex: Male
  Weight: 70 kg

DRUGS (7)
  1. REBIF [Suspect]
     Indication: MULTIPLE SCLEROSIS
     Route: 058
     Dates: start: 20080817
  2. METHOCARBAMOL [Concomitant]
     Indication: BACK PAIN
     Dates: start: 2005, end: 2010
  3. TRAMADOL [Concomitant]
     Indication: BACK PAIN
     Dates: end: 2010
  4. ATENOLOL [Concomitant]
     Indication: HYPERTENSION
     Dates: start: 2004
  5. LISINOPRIL [Concomitant]
     Indication: HYPERTENSION
     Dates: start: 2004
  6. DOXAZOSIN [Concomitant]
     Indication: HYPERTENSION
     Dates: start: 2004
  7. DIPHENHYDRAMINE [Concomitant]
     Indication: HYPERSENSITIVITY

REACTIONS (12)
  - Cerebrovascular accident [Recovered/Resolved]
  - Cerebral artery occlusion [Not Recovered/Not Resolved]
  - Nausea [Unknown]
  - Central nervous system lesion [Unknown]
  - Spinal pain [Not Recovered/Not Resolved]
  - Pain in extremity [Not Recovered/Not Resolved]
  - Neck pain [Not Recovered/Not Resolved]
  - Musculoskeletal pain [Not Recovered/Not Resolved]
  - Thyroid function test abnormal [Unknown]
  - Injection site abscess [Recovering/Resolving]
  - Injection site erythema [Unknown]
  - Injection site pain [Unknown]
